FAERS Safety Report 4893299-9 (Version None)
Quarter: 2006Q1

REPORT INFORMATION
  Report Type: 
  Country: None (occurrence: None)
  Receive Date: 20060124
  Receipt Date: 20060106
  Transmission Date: 20060701
  Serious: Yes (Death, Hospitalization)
  Sender: FDA-Public Use
  Company Number: COT_0358_2006

PATIENT
  Age: 61 Year
  Sex: Female
  Weight: 45.8133 kg

DRUGS (14)
  1. VENTAVIS [Suspect]
     Indication: PULMONARY HYPERTENSION
     Dosage: 5 MCG 6XD IH
     Route: 055
     Dates: start: 20050624
  2. VENTAVIS [Suspect]
     Indication: PULMONARY HYPERTENSION
     Dosage: 5 MCG 6XD IH
     Route: 055
     Dates: start: 20050624
  3. TRACLEER [Concomitant]
  4. REVATIO [Concomitant]
  5. FOLIC ACID [Concomitant]
  6. ASPIRIN [Concomitant]
  7. PREDNISONE [Concomitant]
  8. AVALIDE [Concomitant]
  9. ALLEGRA [Concomitant]
  10. DIGOXIN [Concomitant]
  11. FLUOXETINE [Concomitant]
  12. PROCRIT [Concomitant]
  13. ULTRAM [Concomitant]
  14. PROTONIX [Concomitant]

REACTIONS (4)
  - CONDITION AGGRAVATED [None]
  - PULMONARY EMBOLISM [None]
  - SCLERODERMA [None]
  - SUDDEN DEATH [None]
